FAERS Safety Report 6545668-9 (Version None)
Quarter: 2010Q1

REPORT INFORMATION
  Report Type: 
  Country: None (occurrence: None)
  Receive Date: 20100121
  Receipt Date: 20100118
  Transmission Date: 20100710
  Serious: Yes (Hospitalization)
  Sender: FDA-Public Use
  Company Number: GB-WATSON-2010-00548

PATIENT
  Age: 26 Year
  Sex: Female

DRUGS (3)
  1. CLARITHROMYCIN [Suspect]
     Indication: INFLUENZA
     Dosage: UNK
     Route: 048
  2. CO-AMOXICLAV                       /00756801/ [Suspect]
     Indication: INFLUENZA
     Dosage: UNK
     Route: 048
  3. OSELTAMIVIR [Suspect]
     Indication: INFLUENZA
     Dosage: UNK
     Route: 048

REACTIONS (2)
  - CONDITION AGGRAVATED [None]
  - HYPOXIA [None]
